FAERS Safety Report 24124265 (Version 5)
Quarter: 2025Q4

REPORT INFORMATION
  Report Type: Report from Study
  Country: US (occurrence: US)
  Receive Date: 20240723
  Receipt Date: 20251009
  Transmission Date: 20260118
  Serious: Yes (Other)
  Sender: UCB
  Company Number: US-UCBSA-2024036908

PATIENT
  Age: 76 Year
  Sex: Male

DRUGS (3)
  1. LACOSAMIDE [Suspect]
     Active Substance: LACOSAMIDE
     Indication: Seizure
     Dosage: 200 MILLIGRAM, 2X/DAY (BID)
     Route: 048
  2. LACOSAMIDE [Suspect]
     Active Substance: LACOSAMIDE
     Dosage: 200 MILLIGRAM, 2X/DAY (BID)
     Route: 048
  3. TAMSULOSIN [Concomitant]
     Active Substance: TAMSULOSIN
     Indication: Product used for unknown indication
     Dosage: UNK

REACTIONS (15)
  - Seizure [Recovered/Resolved]
  - Lung neoplasm malignant [Not Recovered/Not Resolved]
  - Brain injury [Unknown]
  - Prostatic operation [Unknown]
  - Cataract [Not Recovered/Not Resolved]
  - Cataract operation [Not Recovered/Not Resolved]
  - Oral surgery [Not Recovered/Not Resolved]
  - Influenza immunisation [Unknown]
  - COVID-19 immunisation [Unknown]
  - Herpes zoster immunisation [Unknown]
  - Tooth fracture [Not Recovered/Not Resolved]
  - Memory impairment [Unknown]
  - Dizziness [Unknown]
  - Loss of personal independence in daily activities [Unknown]
  - Vertigo [Unknown]

NARRATIVE: CASE EVENT DATE: 20231210
